FAERS Safety Report 8920290 (Version 1)
Quarter: 2012Q4

REPORT INFORMATION
  Report Type: Report from Study
  Country: JP (occurrence: JP)
  Receive Date: 20121122
  Receipt Date: 20121122
  Transmission Date: 20130627
  Serious: Yes (Life-Threatening, Other)
  Sender: FDA-Public Use
  Company Number: JP-ROCHE-786379

PATIENT
  Age: 59 Year
  Sex: Female

DRUGS (14)
  1. TOCILIZUMAB [Suspect]
     Indication: CASTLEMAN^S DISEASE
     Route: 041
     Dates: start: 20101111, end: 20101213
  2. TOCILIZUMAB [Suspect]
     Route: 041
     Dates: start: 20101227, end: 20110228
  3. TOCILIZUMAB [Suspect]
     Route: 041
     Dates: start: 20110323, end: 20110323
  4. TOCILIZUMAB [Suspect]
     Route: 041
     Dates: start: 20110407, end: 20110421
  5. TOCILIZUMAB [Suspect]
     Route: 041
     Dates: start: 20110512, end: 20120816
  6. TOCILIZUMAB [Suspect]
     Route: 041
  7. PREDNISOLONE [Concomitant]
     Dosage: DOSE FORM: PERORAL AGENT
     Route: 048
     Dates: start: 20101018, end: 20101114
  8. PREDNISOLONE [Concomitant]
     Route: 048
     Dates: start: 20101105, end: 20110403
  9. PREDNISOLONE [Concomitant]
     Route: 048
  10. NEORAL [Concomitant]
     Dosage: DOSE FORM: PERORAL AGENT
     Route: 065
     Dates: start: 20100614, end: 20100927
  11. NEORAL [Concomitant]
     Route: 065
     Dates: start: 20100928, end: 20101104
  12. NEORAL [Concomitant]
     Route: 065
     Dates: start: 20101129, end: 20110424
  13. NEORAL [Concomitant]
     Route: 065
  14. SULFAMETHOXAZOLE/TRIMETHOPRIM [Concomitant]
     Route: 048

REACTIONS (6)
  - Platelet count decreased [Recovering/Resolving]
  - Chills [Unknown]
  - Pyrexia [Unknown]
  - Blood pressure decreased [Recovered/Resolved]
  - Bradycardia [Recovered/Resolved]
  - Presyncope [Recovered/Resolved]
